FAERS Safety Report 4379249-2 (Version None)
Quarter: 2004Q2

REPORT INFORMATION
  Report Type: 
  Country: None (occurrence: None)
  Receive Date: 20040614
  Receipt Date: 20040602
  Transmission Date: 20050107
  Serious: Yes (Death)
  Sender: FDA-Public Use
  Company Number: 163-20785-04040675

PATIENT
  Age: 67 Year
  Sex: Female

DRUGS (1)
  1. THALOMID [Suspect]
     Indication: LEUKAEMIA PLASMACYTIC
     Dosage: 200 MG, DAILY, ORAL
     Route: 048
     Dates: start: 20030503

REACTIONS (3)
  - DISEASE PROGRESSION [None]
  - LEUKAEMIA PLASMACYTIC [None]
  - MULTIPLE MYELOMA [None]
